FAERS Safety Report 24164174 (Version 1)
Quarter: 2024Q3

REPORT INFORMATION
  Report Type: Spontaneous
  Country: JP (occurrence: JP)
  Receive Date: 20240801
  Receipt Date: 20240801
  Transmission Date: 20241016
  Serious: Yes (Hospitalization, Other)
  Sender: MERCK
  Company Number: JP-ONO-BJ201000866

PATIENT
  Age: 65 Year
  Sex: Male
  Weight: 67 kg

DRUGS (7)
  1. EMEND [Interacting]
     Active Substance: APREPITANT
     Indication: Prophylaxis of nausea and vomiting
     Dosage: 125 MG, EVERYDAY(QD)
     Route: 048
     Dates: start: 20100217, end: 20100217
  2. EMEND [Interacting]
     Active Substance: APREPITANT
     Dosage: 80 MG, EVERYDAY(QD)
     Route: 048
     Dates: start: 20100218, end: 20100219
  3. AVASTIN [Suspect]
     Active Substance: BEVACIZUMAB
     Indication: Chemotherapy
     Dosage: 630MG/DAY
     Route: 042
     Dates: start: 20100217, end: 20100217
  4. XELODA [Suspect]
     Active Substance: CAPECITABINE
     Indication: Chemotherapy
     Dosage: 1800 MG, Q12H (BID)
     Route: 048
     Dates: start: 20100217, end: 20100309
  5. DECADRON [Interacting]
     Active Substance: DEXAMETHASONE
     Indication: Chemotherapy
     Dosage: 6.6MG/DAY
     Route: 042
     Dates: start: 20100217, end: 20100217
  6. OXALIPLATIN [Concomitant]
     Active Substance: OXALIPLATIN
     Indication: Chemotherapy
     Dosage: 240MG/DAY
     Route: 042
     Dates: start: 20100217, end: 20100217
  7. GRANISETRON [Concomitant]
     Active Substance: GRANISETRON
     Dosage: 3 MG, EVERYDAY
     Route: 041
     Dates: start: 20100217, end: 20100217

REACTIONS (2)
  - Gastric ulcer haemorrhage [Recovered/Resolved]
  - Drug interaction [Recovered/Resolved]

NARRATIVE: CASE EVENT DATE: 20100310
